FAERS Safety Report 16867894 (Version 1)
Quarter: 2019Q3

REPORT INFORMATION
  Report Type: Spontaneous
  Country: CA (occurrence: CA)
  Receive Date: 20190930
  Receipt Date: 20190930
  Transmission Date: 20191005
  Serious: Yes (Other)
  Sender: FDA-Public Use
  Company Number: CA-PFIZER INC-2019405449

PATIENT
  Age: 65 Year
  Sex: Female
  Weight: 70 kg

DRUGS (12)
  1. SODIUM THIOSULPHATE [Concomitant]
     Active Substance: SODIUM THIOSULFATE
     Indication: DRUG TOXICITY PROPHYLAXIS
     Dosage: UNK
  2. DOPAMINE [Concomitant]
     Active Substance: DOPAMINE HYDROCHLORIDE
     Indication: MITRAL VALVE INCOMPETENCE
     Dosage: UNK
  3. DOPAMINE [Concomitant]
     Active Substance: DOPAMINE HYDROCHLORIDE
     Indication: CARDIAC FAILURE CONGESTIVE
  4. SODIUM NITROPRUSSIDE. [Suspect]
     Active Substance: SODIUM NITROPRUSSIDE
     Dosage: 1.7 UG/KG, UNK (LOWEST TOLERATED DOSE OF 1.7 UG/KG PER MINUTE; INFUSION)
     Route: 041
  5. FUROSEMIDE. [Concomitant]
     Active Substance: FUROSEMIDE
     Indication: CARDIAC FAILURE CONGESTIVE
  6. NITROGLYCERIN. [Concomitant]
     Active Substance: NITROGLYCERIN
     Indication: MITRAL VALVE INCOMPETENCE
     Dosage: UNK
     Route: 042
  7. HYDRALAZINE [Concomitant]
     Active Substance: HYDRALAZINE HYDROCHLORIDE
     Indication: CARDIAC FAILURE CONGESTIVE
     Dosage: UNK (THROUGH A NASOGASTRIC TUBE)
  8. SODIUM NITROPRUSSIDE. [Suspect]
     Active Substance: SODIUM NITROPRUSSIDE
     Indication: CARDIAC FAILURE CONGESTIVE
     Dosage: 2.3 UG/KG, UNK (PER MINUTE; INFUSION)
     Route: 041
  9. HYDRALAZINE [Concomitant]
     Active Substance: HYDRALAZINE HYDROCHLORIDE
     Indication: INCREASED VENTRICULAR AFTERLOAD
  10. FUROSEMIDE. [Concomitant]
     Active Substance: FUROSEMIDE
     Indication: MITRAL VALVE INCOMPETENCE
     Dosage: UNK (INFUSION)
  11. SODIUM NITROPRUSSIDE. [Suspect]
     Active Substance: SODIUM NITROPRUSSIDE
     Indication: INCREASED VENTRICULAR AFTERLOAD
     Dosage: 2.7 UG/KG, UNK (NP INFUSION RATE WAS INCREASED TO 2.7 UG/KG PER MINUTE)
     Route: 041
  12. NITROGLYCERIN. [Concomitant]
     Active Substance: NITROGLYCERIN
     Indication: CARDIAC FAILURE CONGESTIVE

REACTIONS (1)
  - Toxicity to various agents [Recovered/Resolved]
